FAERS Safety Report 4520032-2 (Version None)
Quarter: 2004Q4

REPORT INFORMATION
  Report Type: 
  Country: None (occurrence: None)
  Receive Date: 20041207
  Receipt Date: 20041201
  Transmission Date: 20050328
  Serious: Yes (Death, Hospitalization, Other)
  Sender: FDA-Public Use
  Company Number: PHBS2004SA16295

PATIENT
  Age: 9 Month
  Sex: Male

DRUGS (3)
  1. JUNIFEN [Concomitant]
     Indication: PYREXIA
  2. TEMPRA [Concomitant]
  3. VOLTAREN [Suspect]
     Indication: PYREXIA
     Dosage: 12.5 MG, UNK
     Route: 054

REACTIONS (16)
  - ALANINE AMINOTRANSFERASE INCREASED [None]
  - AMMONIA INCREASED [None]
  - ASPARTATE AMINOTRANSFERASE INCREASED [None]
  - BILIRUBIN CONJUGATED INCREASED [None]
  - BLOOD BILIRUBIN INCREASED [None]
  - CHROMATURIA [None]
  - CYTOMEGALOVIRUS INFECTION [None]
  - ECHO VIRUS INFECTION [None]
  - ENTEROVIRUS INFECTION [None]
  - GENERAL PHYSICAL HEALTH DETERIORATION [None]
  - HEPATIC ENZYME INCREASED [None]
  - HEPATIC FAILURE [None]
  - HEPATITIS FULMINANT [None]
  - LIVER TRANSPLANT [None]
  - PROTHROMBIN TIME PROLONGED [None]
  - URINE BILIRUBIN INCREASED [None]
